FAERS Safety Report 9787574 (Version 1)
Quarter: 2013Q4

REPORT INFORMATION
  Report Type: Spontaneous
  Country: CA (occurrence: CA)
  Receive Date: 20131230
  Receipt Date: 20131230
  Transmission Date: 20140711
  Serious: Yes (Other)
  Sender: FDA-Public Use
  Company Number: CA-JNJFOC-20131215202

PATIENT
  Sex: Male

DRUGS (1)
  1. NICORETTE QUICKMIST 1MG [Suspect]
     Indication: SMOKING CESSATION THERAPY
     Route: 065

REACTIONS (4)
  - Suicidal ideation [Unknown]
  - Dependence [Unknown]
  - Product label issue [Unknown]
  - Drug ineffective [Unknown]
